FAERS Safety Report 5412749-2 (Version None)
Quarter: 2007Q3

REPORT INFORMATION
  Report Type: 
  Country: None (occurrence: None)
  Receive Date: 20070813
  Receipt Date: 20070806
  Transmission Date: 20080115
  Serious: Yes (Death)
  Sender: FDA-Public Use
  Company Number: DE-ABBOTT-07P-062-0376177-00

PATIENT
  Sex: Male
  Weight: 81.3 kg

DRUGS (4)
  1. KLACID [Suspect]
     Indication: PNEUMONIA PRIMARY ATYPICAL
     Route: 048
     Dates: start: 20070714, end: 20070720
  2. ITRACONAZOLE [Suspect]
     Indication: FUNGAL INFECTION
     Route: 042
     Dates: start: 20070711, end: 20070712
  3. ITRACONAZOLE [Suspect]
     Route: 042
     Dates: start: 20070713, end: 20070714
  4. CASPOFUNGIN [Suspect]
     Indication: PNEUMONIA PRIMARY ATYPICAL
     Route: 042
     Dates: start: 20070714, end: 20070720

REACTIONS (4)
  - BLOOD BILIRUBIN INCREASED [None]
  - NEOPLASM [None]
  - RESPIRATORY FAILURE [None]
  - STREPTOCOCCAL SEPSIS [None]
